FAERS Safety Report 12644706 (Version 1)
Quarter: 2016Q3

REPORT INFORMATION
  Report Type: Spontaneous
  Country: GB (occurrence: GB)
  Receive Date: 20160811
  Receipt Date: 20160811
  Transmission Date: 20161109
  Serious: Yes (Life-Threatening)
  Sender: FDA-Public Use
  Company Number: GB-ASTRAZENECA-2016SE83834

PATIENT
  Age: 61 Year
  Sex: Male

DRUGS (17)
  1. BYETTA [Suspect]
     Active Substance: EXENATIDE
     Indication: TYPE 2 DIABETES MELLITUS
     Route: 058
     Dates: start: 20151130
  2. ESCITALOPRAM [Concomitant]
     Active Substance: ESCITALOPRAM OXALATE
  3. ASPIRIN. [Concomitant]
     Active Substance: ASPIRIN
  4. FUROSEMIDE. [Concomitant]
     Active Substance: FUROSEMIDE
  5. ALFUZOSIN [Concomitant]
     Active Substance: ALFUZOSIN
  6. SIMVASTATIN. [Concomitant]
     Active Substance: SIMVASTATIN
  7. ALVERINE [Concomitant]
     Active Substance: ALVERINE
  8. FINASTERIDE. [Concomitant]
     Active Substance: FINASTERIDE
  9. LAMOTRIGINE. [Concomitant]
     Active Substance: LAMOTRIGINE
  10. CARBAMAZEPINE. [Concomitant]
     Active Substance: CARBAMAZEPINE
  11. DIHYDROCODEINE [Concomitant]
     Active Substance: DIHYDROCODEINE
  12. LEVOTHYROXINE. [Concomitant]
     Active Substance: LEVOTHYROXINE
  13. CETIRIZINE [Concomitant]
     Active Substance: CETIRIZINE HYDROCHLORIDE
  14. GLICLAZIDE [Concomitant]
     Active Substance: GLICLAZIDE
  15. METFORMIN [Concomitant]
     Active Substance: METFORMIN HYDROCHLORIDE
  16. OMEPRAZOLE. [Concomitant]
     Active Substance: OMEPRAZOLE
  17. ROPINIROLE. [Concomitant]
     Active Substance: ROPINIROLE

REACTIONS (1)
  - Pancreatic carcinoma [Unknown]

NARRATIVE: CASE EVENT DATE: 201607
